FAERS Safety Report 17874049 (Version 1)
Quarter: 2020Q2

REPORT INFORMATION
  Report Type: Spontaneous
  Country: US (occurrence: US)
  Receive Date: 20200609
  Receipt Date: 20200609
  Transmission Date: 20200714
  Serious: Yes (Other)
  Sender: FDA-Public Use
  Company Number: US-SA-2020SA145863

PATIENT

DRUGS (2)
  1. DUPIXENT [Suspect]
     Active Substance: DUPILUMAB
     Indication: DERMATITIS ATOPIC
     Dosage: 300 MG, QOW
     Route: 058
  2. DUPIXENT [Suspect]
     Active Substance: DUPILUMAB
     Indication: PSORIASIS

REACTIONS (5)
  - Product use in unapproved indication [Unknown]
  - Malignant neoplasm of unknown primary site [Unknown]
  - Pancreatic carcinoma stage IV [Unknown]
  - Lung carcinoma cell type unspecified stage IV [Unknown]
  - Acne [Unknown]

NARRATIVE: CASE EVENT DATE: 2018
